FAERS Safety Report 13238197 (Version 1)
Quarter: 2017Q1

REPORT INFORMATION
  Report Type: Spontaneous
  Country: US (occurrence: US)
  Receive Date: 20170215
  Receipt Date: 20170215
  Transmission Date: 20170428
  Serious: Yes (Hospitalization)
  Sender: FDA-Public Use
  Company Number: None

PATIENT
  Age: 78 Year
  Sex: Male
  Weight: 92 kg

DRUGS (1)
  1. WARFARIN [Suspect]
     Active Substance: WARFARIN
     Indication: HYPERCOAGULATION
     Dosage: MG PO
     Route: 048
     Dates: start: 20090401

REACTIONS (5)
  - Disorientation [None]
  - Subdural haemorrhage [None]
  - Head injury [None]
  - Traumatic intracranial haemorrhage [None]
  - Fall [None]

NARRATIVE: CASE EVENT DATE: 20161219
